FAERS Safety Report 20706765 (Version 2)
Quarter: 2023Q2

REPORT INFORMATION
  Report Type: Spontaneous
  Country: US (occurrence: US)
  Receive Date: 20220413
  Receipt Date: 20230512
  Transmission Date: 20230722
  Serious: No
  Sender: FDA-Public Use
  Company Number: US-PFIZER INC-2021777706

PATIENT
  Age: 34 Year
  Sex: Female

DRUGS (1)
  1. MARCAINE [Suspect]
     Active Substance: BUPIVACAINE HYDROCHLORIDE
     Indication: Spinal anaesthesia
     Dosage: 1.6ML, UNABLE TO PROVIDE ROUTE, OR FREQUENCY

REACTIONS (2)
  - Hypotension [Unknown]
  - Drug ineffective [Unknown]
